FAERS Safety Report 10727875 (Version 1)
Quarter: 2015Q1

REPORT INFORMATION
  Report Type: Spontaneous
  Country: US (occurrence: US)
  Receive Date: 20150121
  Receipt Date: 20150121
  Transmission Date: 20150721
  Serious: Yes (Hospitalization)
  Sender: FDA-Public Use
  Company Number: US-JNJFOC-20150113560

PATIENT
  Sex: Female

DRUGS (7)
  1. IMBRUVICA [Suspect]
     Active Substance: IBRUTINIB
     Indication: LYMPHOMA
  2. ABILIFY [Concomitant]
     Active Substance: ARIPIPRAZOLE
  3. PROTONIX [Concomitant]
     Active Substance: PANTOPRAZOLE SODIUM
  4. LEXAPRO [Concomitant]
     Active Substance: ESCITALOPRAM OXALATE
  5. DIAZEPAM. [Concomitant]
     Active Substance: DIAZEPAM
  6. IMBRUVICA [Suspect]
     Active Substance: IBRUTINIB
     Indication: LYMPHOMA
     Dates: start: 20141106
  7. OXYCODONE [Concomitant]
     Active Substance: OXYCODONE

REACTIONS (2)
  - Back pain [Unknown]
  - Bipolar disorder [Recovering/Resolving]
